FAERS Safety Report 9373526 (Version 3)
Quarter: 2013Q3

REPORT INFORMATION
  Report Type: Report from Study
  Country: AR (occurrence: AR)
  Receive Date: 20130627
  Receipt Date: 20130719
  Transmission Date: 20140515
  Serious: Yes (Hospitalization, Other)
  Sender: FDA-Public Use
  Company Number: PHHY2013AR066453

PATIENT
  Age: 66 Year
  Sex: Female

DRUGS (2)
  1. EXFORGE D [Suspect]
     Indication: HYPERTENSION
     Dosage: 1 DF (160/5/12.5MG) DAILY
     Route: 048
     Dates: start: 2013
  2. EXFORGE D [Suspect]
     Dosage: 1.5 DF, (160/5/12.5MG) DAILY
     Route: 048
     Dates: start: 2013

REACTIONS (5)
  - Aortic dilatation [Recovering/Resolving]
  - Cardiomegaly [Recovering/Resolving]
  - Arrhythmia [Recovering/Resolving]
  - Blood pressure increased [Unknown]
  - Wrong technique in drug usage process [Unknown]
